FAERS Safety Report 4610985-6 (Version None)
Quarter: 2005Q1

REPORT INFORMATION
  Report Type: 
  Country: None (occurrence: None)
  Receive Date: 20050315
  Receipt Date: 20050315
  Transmission Date: 20050727
  Serious: Yes (Hospitalization, Disabling, Other)
  Sender: FDA-Public Use
  Company Number: None

PATIENT
  Age: 54 Year
  Sex: Male
  Weight: 104.3273 kg

DRUGS (3)
  1. CORICIDIN D TABLETS [Suspect]
     Indication: NASOPHARYNGITIS
     Dosage: ORAL
     Route: 048
  2. CARDIZEM [Concomitant]
  3. ANTICOAGULANTS [Concomitant]

REACTIONS (13)
  - ANXIETY [None]
  - ATRIAL FIBRILLATION [None]
  - CHEST PAIN [None]
  - EMOTIONAL DISTRESS [None]
  - GALLBLADDER PERFORATION [None]
  - GASTRIC ULCER [None]
  - GASTRITIS [None]
  - HAEMORRHAGIC STROKE [None]
  - PAIN [None]
  - PLEURAL EFFUSION [None]
  - PNEUMOTHORAX [None]
  - POLYTRAUMATISM [None]
  - PROSTATE CANCER METASTATIC [None]
